FAERS Safety Report 7757873-4 (Version None)
Quarter: 2011Q3

REPORT INFORMATION
  Report Type: 
  Country: None (occurrence: None)
  Receive Date: 20110918
  Receipt Date: 20110906
  Transmission Date: 20111222
  Serious: Yes (Death)
  Sender: FDA-Public Use
  Company Number: GB-BRISTOL-MYERS SQUIBB COMPANY-16063364

PATIENT
  Sex: Male

DRUGS (6)
  1. CARMUSTINE [Suspect]
     Indication: ASTROCYTOMA
     Dosage: 1DF:800-1000MG/SQ.M
     Route: 042
  2. PROCARBAZINE HYDROCHLORIDE [Concomitant]
  3. CISPLATIN [Concomitant]
  4. CARBOPLATIN [Concomitant]
  5. VINCRISTINE [Concomitant]
  6. DEXAMETHASONE [Concomitant]

REACTIONS (1)
  - DEATH [None]
